FAERS Safety Report 23677625 (Version 1)
Quarter: 2024Q1

REPORT INFORMATION
  Report Type: Spontaneous
  Country: US (occurrence: US)
  Receive Date: 20240327
  Receipt Date: 20240327
  Transmission Date: 20240409
  Serious: No
  Sender: FDA-Public Use
  Company Number: US-ALKERMES INC.-ALK-2024-000700

PATIENT
  Age: 68 Year
  Sex: Male

DRUGS (1)
  1. ARISTADA [Suspect]
     Active Substance: ARIPIPRAZOLE LAUROXIL
     Indication: Schizophrenia
     Dosage: 882 MILLIGRAM
     Route: 030

REACTIONS (2)
  - Incorrect dose administered [Recovered/Resolved]
  - Needle issue [Recovered/Resolved]

NARRATIVE: CASE EVENT DATE: 20240312
